FAERS Safety Report 9579940 (Version 1)
Quarter: 2013Q3

REPORT INFORMATION
  Report Type: Spontaneous
  Country: US (occurrence: None)
  Receive Date: 20130930
  Receipt Date: 20130930
  Transmission Date: 20140515
  Serious: Yes (Disabling)
  Sender: FDA-Public Use
  Company Number: None

PATIENT
  Age: 30 Year
  Sex: Female
  Weight: 68.04 kg

DRUGS (1)
  1. LARIAM [Suspect]
     Indication: PROPHYLAXIS

REACTIONS (6)
  - Dyspnoea [None]
  - Middle insomnia [None]
  - Chest discomfort [None]
  - Arthralgia [None]
  - Panic reaction [None]
  - Abnormal behaviour [None]
